FAERS Safety Report 21811174 (Version 2)
Quarter: 2023Q2

REPORT INFORMATION
  Report Type: Report from Study
  Country: US (occurrence: US)
  Receive Date: 20230103
  Receipt Date: 20230421
  Transmission Date: 20230722
  Serious: No
  Sender: FDA-Public Use
  Company Number: US-ABBVIE-4217126

PATIENT
  Sex: Female

DRUGS (1)
  1. RINVOQ [Suspect]
     Active Substance: UPADACITINIB
     Indication: Psoriatic arthropathy
     Route: 048
     Dates: start: 20221015

REACTIONS (2)
  - Oropharyngeal pain [Not Recovered/Not Resolved]
  - Cough [Not Recovered/Not Resolved]
